FAERS Safety Report 20115185 (Version 3)
Quarter: 2022Q1

REPORT INFORMATION
  Report Type: Report from Study
  Country: US (occurrence: US)
  Receive Date: 20211125
  Receipt Date: 20220309
  Transmission Date: 20220423
  Serious: No
  Sender: FDA-Public Use
  Company Number: US-ACADIA PHARMACEUTICALS INC.-ACA-2021-PIM-003915

PATIENT
  Sex: Female
  Weight: 45 kg

DRUGS (15)
  1. NUPLAZID [Suspect]
     Active Substance: PIMAVANSERIN TARTRATE
     Indication: Parkinson^s disease psychosis
     Dosage: 34 MILLIGRAM, QD
     Route: 048
     Dates: start: 202110
  2. NUPLAZID [Suspect]
     Active Substance: PIMAVANSERIN TARTRATE
     Indication: Hallucination
  3. NUPLAZID [Suspect]
     Active Substance: PIMAVANSERIN TARTRATE
     Indication: Delusion
  4. MELATONIN [Suspect]
     Active Substance: MELATONIN
     Dosage: CUT OUT
  5. XANAX [Suspect]
     Active Substance: ALPRAZOLAM
     Dosage: DOSE OF XANAX AT BEDTIME WAS LOWERED
  6. DEPAKOTE [Suspect]
     Active Substance: DIVALPROEX SODIUM
  7. SEROQUEL [Suspect]
     Active Substance: QUETIAPINE FUMARATE
  8. NAMENDA [Concomitant]
     Active Substance: MEMANTINE HYDROCHLORIDE
  9. AMLODIPINE [Concomitant]
     Active Substance: AMLODIPINE BESYLATE
  10. ZOLOFT [Concomitant]
     Active Substance: SERTRALINE HYDROCHLORIDE
  11. BUSPAR [Concomitant]
     Active Substance: BUSPIRONE HYDROCHLORIDE
  12. BYSTOLIC [Concomitant]
     Active Substance: NEBIVOLOL HYDROCHLORIDE
  13. GALANTAMINE [Concomitant]
     Active Substance: GALANTAMINE
  14. NORVASC [Concomitant]
     Active Substance: AMLODIPINE BESYLATE
  15. MEGACE [Concomitant]
     Active Substance: MEGESTROL ACETATE

REACTIONS (12)
  - Condition aggravated [Not Recovered/Not Resolved]
  - Sedation [Not Recovered/Not Resolved]
  - Mania [Not Recovered/Not Resolved]
  - Logorrhoea [Not Recovered/Not Resolved]
  - Abnormal behaviour [Not Recovered/Not Resolved]
  - Psychomotor hyperactivity [Unknown]
  - Hypersomnia [Unknown]
  - Agitation [Not Recovered/Not Resolved]
  - Aggression [Not Recovered/Not Resolved]
  - Hallucination [Not Recovered/Not Resolved]
  - Somnolence [Unknown]
  - Drug ineffective [Recovered/Resolved]

NARRATIVE: CASE EVENT DATE: 20210101
